FAERS Safety Report 18583423 (Version 1)
Quarter: 2020Q4

REPORT INFORMATION
  Report Type: Spontaneous
  Country: US (occurrence: US)
  Receive Date: 20201206
  Receipt Date: 20201206
  Transmission Date: 20210114
  Serious: Yes (Other)
  Sender: FDA-Public Use
  Company Number: US-BRISTOL-MYERS SQUIBB COMPANY-BMS-2020-100222

PATIENT
  Age: 58 Year
  Weight: 130.4 kg

DRUGS (1)
  1. COUMADIN [Suspect]
     Active Substance: WARFARIN SODIUM
     Indication: THROMBOSIS PROPHYLAXIS
     Dosage: 5 MILLIGRAM DAILY
     Route: 048
     Dates: start: 2012

REACTIONS (4)
  - Calciphylaxis [Unknown]
  - Bacteraemia [Unknown]
  - Osteomyelitis [Unknown]
  - Transplant failure [Unknown]

NARRATIVE: CASE EVENT DATE: 20201123
